FAERS Safety Report 12175650 (Version 2)
Quarter: 2016Q2

REPORT INFORMATION
  Report Type: Spontaneous
  Country: FI (occurrence: FI)
  Receive Date: 20160314
  Receipt Date: 20160418
  Transmission Date: 20160815
  Serious: Yes (Other)
  Sender: FDA-Public Use
  Company Number: FI-BAXTER-2016BAX011020

PATIENT
  Sex: Female

DRUGS (1)
  1. RINGER-ACETAT BAXTER VIAFLO INFUUSIONESTE, LIUOS [Suspect]
     Active Substance: RINGER^S SOLUTION
     Indication: PRODUCT USED FOR UNKNOWN INDICATION
     Route: 042

REACTIONS (1)
  - Hypersensitivity [Recovered/Resolved]
